FAERS Safety Report 26102705 (Version 2)
Quarter: 2025Q4

REPORT INFORMATION
  Report Type: Spontaneous
  Country: RS (occurrence: RS)
  Receive Date: 20251128
  Receipt Date: 20251215
  Transmission Date: 20260118
  Serious: Yes (Hospitalization)
  Sender: BOEHRINGER INGELHEIM
  Company Number: RS-BoehringerIngelheim-2025-BI-109757

PATIENT
  Age: 45 Year
  Sex: Male
  Weight: 110 kg

DRUGS (1)
  1. PRADAXA [Suspect]
     Active Substance: DABIGATRAN ETEXILATE MESYLATE
     Indication: Pulmonary embolism
     Dates: start: 2017, end: 20251120

REACTIONS (5)
  - Pain in extremity [Unknown]
  - Thrombophlebitis [Unknown]
  - Pulmonary embolism [Unknown]
  - Peripheral swelling [Unknown]
  - Fibrin D dimer increased [Unknown]

NARRATIVE: CASE EVENT DATE: 20251120
